FAERS Safety Report 21691883 (Version 1)
Quarter: 2022Q4

REPORT INFORMATION
  Report Type: Spontaneous
  Country: AU (occurrence: None)
  Receive Date: 20221207
  Receipt Date: 20221207
  Transmission Date: 20230112
  Serious: Yes (Other)
  Sender: FDA-Public Use
  Company Number: 2022A376387

PATIENT
  Age: 18877 Day
  Sex: Female
  Weight: 57 kg

DRUGS (1)
  1. FASENRA [Suspect]
     Active Substance: BENRALIZUMAB
     Indication: Asthma
     Route: 058
     Dates: start: 20221021

REACTIONS (1)
  - Herpes simplex reactivation [Recovered/Resolved]

NARRATIVE: CASE EVENT DATE: 20221030
